FAERS Safety Report 5829002-5 (Version None)
Quarter: 2008Q3

REPORT INFORMATION
  Report Type: 
  Country: None (occurrence: None)
  Receive Date: 20080731
  Receipt Date: 20080722
  Transmission Date: 20090109
  Serious: No
  Sender: FDA-Public Use
  Company Number: PHHY2008JP12449

PATIENT
  Sex: Female

DRUGS (4)
  1. MIKELAN (NVO) [Suspect]
     Indication: NORMAL TENSION GLAUCOMA
     Dosage: 2 %, 1GTT OU
     Route: 047
     Dates: start: 20080318, end: 20080408
  2. PIRENOXINE [Concomitant]
     Indication: NORMAL TENSION GLAUCOMA
     Dosage: 4 GTT OU
     Dates: start: 20080210
  3. PIRENOXINE [Concomitant]
     Indication: CATARACT
  4. MECOBALAMIN [Concomitant]
     Dosage: 0.5 MG, PRN
     Route: 048
     Dates: start: 20071024

REACTIONS (4)
  - BRADYCARDIA [None]
  - DIZZINESS [None]
  - PALPITATIONS [None]
  - VENTRICULAR EXTRASYSTOLES [None]
